FAERS Safety Report 4346481-3 (Version None)
Quarter: 2004Q2

REPORT INFORMATION
  Report Type: 
  Country: None (occurrence: None)
  Receive Date: 20040426
  Receipt Date: 20030709
  Transmission Date: 20050107
  Serious: No
  Sender: FDA-Public Use
  Company Number: US-BRISTOL-MYERS SQUIBB COMPANY-12321568

PATIENT
  Age: 56 Year
  Sex: Female
  Weight: 59 kg

DRUGS (10)
  1. CARBOPLATIN [Suspect]
     Indication: NON-SMALL CELL LUNG CANCER
     Dosage: INITIAL DOSE: 29-OCT-2002
     Route: 042
     Dates: start: 20030418, end: 20030418
  2. TAXOL [Concomitant]
     Dosage: OVER 3 HOURS
     Route: 042
     Dates: start: 20030418
  3. BENADRYL [Concomitant]
     Indication: PREMEDICATION
     Route: 042
     Dates: start: 20030418, end: 20030418
  4. ANZEMET [Concomitant]
     Indication: PREMEDICATION
     Route: 042
     Dates: start: 20030418, end: 20030418
  5. DECADRON [Concomitant]
     Indication: PREMEDICATION
     Route: 042
     Dates: start: 20030418, end: 20030418
  6. PEPCID [Concomitant]
     Indication: PREMEDICATION
     Route: 042
     Dates: start: 20030418, end: 20030418
  7. ATIVAN [Concomitant]
     Indication: PREMEDICATION
     Route: 042
     Dates: start: 20030418, end: 20030418
  8. XANAX [Concomitant]
  9. AMBIEN [Concomitant]
  10. EFFEXOR [Concomitant]

REACTIONS (3)
  - BURNING SENSATION [None]
  - ERYTHEMA [None]
  - PRURITUS [None]
